FAERS Safety Report 5990078-6 (Version None)
Quarter: 2008Q4

REPORT INFORMATION
  Report Type: 
  Country: None (occurrence: None)
  Receive Date: 20081211
  Receipt Date: 20081208
  Transmission Date: 20090506
  Serious: Yes (Life-Threatening, Hospitalization)
  Sender: FDA-Public Use
  Company Number: JP-BRISTOL-MYERS SQUIBB COMPANY-14375232

PATIENT
  Age: 63 Year
  Sex: Male

DRUGS (4)
  1. AVAPRO [Suspect]
     Indication: HYPERTENSION
     Route: 048
     Dates: start: 20080911, end: 20081007
  2. AMARYL [Suspect]
     Indication: DIABETES MELLITUS
     Dosage: 6MG TAKEN FROM 11-24SEP08 AND DOSE REDUCED TO 4MG FROM 25SEP08 TO 07OCT08.
     Route: 048
     Dates: start: 20080911, end: 20081007
  3. CRESTOR [Suspect]
     Indication: HYPERCHOLESTEROLAEMIA
     Route: 048
     Dates: start: 20080911, end: 20081007
  4. LANTUS [Suspect]
     Indication: DIABETES MELLITUS
     Route: 058
     Dates: start: 20080925

REACTIONS (2)
  - CEREBRAL INFARCTION [None]
  - HEPATITIS ACUTE [None]
